FAERS Safety Report 5338505-1 (Version None)
Quarter: 2007Q2

REPORT INFORMATION
  Report Type: 
  Country: None (occurrence: None)
  Receive Date: 20070405
  Receipt Date: 20061106
  Transmission Date: 20071010
  Serious: No
  Sender: FDA-Public Use
  Company Number: US200611001367

PATIENT
  Age: 33 Year
  Sex: Female

DRUGS (1)
  1. CYMBALTA [Suspect]
     Dosage: 60 MG
     Dates: start: 20061017, end: 20061102

REACTIONS (2)
  - CONFUSIONAL STATE [None]
  - FIBRIN D DIMER INCREASED [None]
